FAERS Safety Report 5880559-8 (Version None)
Quarter: 2008Q3

REPORT INFORMATION
  Report Type: 
  Country: None (occurrence: None)
  Receive Date: 20080912
  Receipt Date: 20080611
  Transmission Date: 20090109
  Serious: No
  Sender: FDA-Public Use
  Company Number: US-ABBOTT-08P-163-0454810-00

PATIENT
  Sex: Female
  Weight: 69.008 kg

DRUGS (13)
  1. HUMIRA [Suspect]
     Indication: RHEUMATOID ARTHRITIS
     Route: 058
     Dates: start: 20030101, end: 20080519
  2. HUMIRA [Suspect]
  3. MEPACRINE HYDROCHLORIDE [Concomitant]
     Indication: RHEUMATOID ARTHRITIS
     Route: 048
     Dates: start: 20070101
  4. ACETYLSALICYLIC ACID SRT [Concomitant]
     Indication: DRUG USE FOR UNKNOWN INDICATION
     Route: 048
  5. LEVOTHYROXINE SODIUM [Concomitant]
     Indication: HYPOTHYROIDISM
     Dosage: LOW DOSE
     Route: 048
  6. AMLODIPINE [Concomitant]
     Indication: HYPERTENSION
     Route: 048
  7. LANSOPRAZOLE [Concomitant]
     Indication: GASTROOESOPHAGEAL REFLUX DISEASE
     Route: 048
  8. QUEVAR [Concomitant]
     Indication: HYPERSENSITIVITY
     Dosage: TAKEN AS DIRECTED
  9. QUEVAR [Concomitant]
     Indication: ASTHMA
  10. MAXZIDE [Concomitant]
     Indication: HYPERTENSION
     Route: 048
  11. VITAMIN TAB [Concomitant]
     Indication: VITAMIN SUPPLEMENTATION
     Route: 048
  12. ASTYLIN [Concomitant]
     Indication: HYPERSENSITIVITY
  13. ASTYLIN [Concomitant]
     Indication: ASTHMA

REACTIONS (7)
  - ACNE [None]
  - ALOPECIA [None]
  - DYSPNOEA [None]
  - FATIGUE [None]
  - INJECTION SITE IRRITATION [None]
  - SINUSITIS [None]
  - TRICHORRHEXIS [None]
